FAERS Safety Report 4984599-2 (Version None)
Quarter: 2006Q2

REPORT INFORMATION
  Report Type: 
  Country: None (occurrence: None)
  Receive Date: 20060427
  Receipt Date: 20060417
  Transmission Date: 20061013
  Serious: Yes (Other)
  Sender: FDA-Public Use
  Company Number: US-SANOFI-SYNTHELABO-A03200602484

PATIENT
  Sex: Female

DRUGS (1)
  1. AMBIEN [Suspect]
     Indication: INSOMNIA
     Dosage: UNK
     Route: 048

REACTIONS (2)
  - BIPOLAR I DISORDER [None]
  - COMPLETED SUICIDE [None]
